FAERS Safety Report 5817357-7 (Version None)
Quarter: 2008Q3

REPORT INFORMATION
  Report Type: 
  Country: None (occurrence: None)
  Receive Date: 20080715
  Receipt Date: 20080630
  Transmission Date: 20090109
  Serious: Yes (Other)
  Sender: FDA-Public Use
  Company Number: 100#08#2008-03414

PATIENT
  Age: 41 Year
  Sex: Female

DRUGS (4)
  1. VENLAFAXINE HCL [Suspect]
     Indication: DEPRESSION
     Dosage: 150 MG, 37.5 MG THREE TIMES DAILY; GRADUALLY DECREASED FROM 150 MG, TO 75 MG AND FINALLY TO 37.5 MG
  2. VENLAFAXINE HCL [Suspect]
     Indication: DEPRESSION
     Dosage: 150 MG, 37.5 MG THREE TIMES DAILY; GRADUALLY DECREASED FROM 150 MG, TO 75 MG AND FINALLY TO 37.5 MG
  3. FLUOXETINE [Concomitant]
  4. DULOXETINE (DULOXETINE) [Concomitant]

REACTIONS (16)
  - ANXIETY [None]
  - DIARRHOEA [None]
  - DIZZINESS [None]
  - FATIGUE [None]
  - FREQUENT BOWEL MOVEMENTS [None]
  - HEADACHE [None]
  - HYPERHIDROSIS [None]
  - NAUSEA [None]
  - PAIN [None]
  - PALPITATIONS [None]
  - PARAESTHESIA [None]
  - RESTLESSNESS [None]
  - SEXUAL DYSFUNCTION [None]
  - TREMOR [None]
  - VOMITING [None]
  - WITHDRAWAL SYNDROME [None]
